FAERS Safety Report 4681871-0 (Version None)
Quarter: 2005Q2

REPORT INFORMATION
  Report Type: 
  Country: None (occurrence: None)
  Receive Date: 20050602
  Receipt Date: 20050516
  Transmission Date: 20051028
  Serious: No
  Sender: FDA-Public Use
  Company Number: GBS050417229

PATIENT
  Sex: Female
  Weight: 56 kg

DRUGS (1)
  1. STRATTERA [Suspect]
     Indication: ATTENTION DEFICIT/HYPERACTIVITY DISORDER
     Dosage: 70 MG DAY
     Dates: start: 20041101

REACTIONS (4)
  - CONDITION AGGRAVATED [None]
  - DECREASED APPETITE [None]
  - RAYNAUD'S PHENOMENON [None]
  - WEIGHT DECREASED [None]
